FAERS Safety Report 4978928-3 (Version None)
Quarter: 2006Q2

REPORT INFORMATION
  Report Type: 
  Country: None (occurrence: None)
  Receive Date: 20060417
  Receipt Date: 20060410
  Transmission Date: 20061013
  Serious: Yes (Other)
  Sender: FDA-Public Use
  Company Number: 2006039045

PATIENT
  Age: 78 Year
  Sex: Female

DRUGS (7)
  1. MIGLITOL TABLET (MIGLITOL) [Suspect]
     Indication: DIABETES MELLITUS
     Dosage: 75 MG (3 TABLETS DAILY), ORAL
     Route: 048
     Dates: start: 20060131, end: 20060204
  2. AMARYL [Suspect]
     Indication: DIABETES MELLITUS
     Dosage: 3 MG (1 D), ORAL
     Route: 048
  3. ACTOS [Concomitant]
  4. AMLODIPINE [Concomitant]
  5. MICARDIS [Concomitant]
  6. TRANDOLAPRIL [Concomitant]
  7. URSO 250 [Concomitant]

REACTIONS (2)
  - DEPRESSED LEVEL OF CONSCIOUSNESS [None]
  - HYPOGLYCAEMIA [None]
